FAERS Safety Report 8804995 (Version 3)
Quarter: 2013Q1

REPORT INFORMATION
  Report Type: Spontaneous
  Country: US (occurrence: US)
  Receive Date: 20120924
  Receipt Date: 20130124
  Transmission Date: 20140127
  Serious: Yes (Hospitalization)
  Sender: FDA-Public Use
  Company Number: US-JNJFOC-20120908856

PATIENT
  Age: 54 Year
  Sex: Female
  Weight: 124.74 kg

DRUGS (19)
  1. PARACETAMOL [Suspect]
     Route: 048
  2. PARACETAMOL [Suspect]
     Indication: RHEUMATOID ARTHRITIS
     Route: 048
     Dates: start: 20120214
  3. UNSPECIFIED INGREDIENT [Suspect]
     Indication: RHEUMATOID ARTHRITIS
     Route: 065
     Dates: start: 20110928, end: 20120822
  4. UNSPECIFIED INGREDIENT [Suspect]
     Indication: RHEUMATOID ARTHRITIS
     Route: 065
     Dates: start: 20110831, end: 20110928
  5. UNSPECIFIED INGREDIENT [Suspect]
     Indication: RHEUMATOID ARTHRITIS
     Route: 065
     Dates: start: 20120904
  6. ARAVA [Suspect]
     Indication: RHEUMATOID ARTHRITIS
     Route: 065
     Dates: start: 20100525, end: 20120820
  7. AN UNKNOWN MEDICATION [Suspect]
     Indication: RHEUMATOID ARTHRITIS
     Route: 065
     Dates: start: 20110831, end: 20110928
  8. CALCIUM [Concomitant]
     Route: 065
     Dates: start: 20021202
  9. ZYRTEC [Concomitant]
     Indication: MULTIPLE ALLERGIES
     Route: 065
     Dates: start: 20100427
  10. METOPROLOL [Concomitant]
     Indication: HYPERTENSION
     Route: 065
     Dates: start: 20100427
  11. PRILOSEC [Concomitant]
     Route: 065
     Dates: start: 20100525
  12. FLEXERIL [Concomitant]
     Indication: RHEUMATOID ARTHRITIS
     Route: 065
     Dates: start: 20100427
  13. HYDROCODONE BITARTRATE/PARACETAMOL [Concomitant]
     Route: 065
     Dates: start: 20120214
  14. ADVIL [Concomitant]
     Route: 065
     Dates: start: 20120114, end: 20120820
  15. PREDNISONE [Concomitant]
     Indication: RHEUMATOID ARTHRITIS
     Route: 065
     Dates: start: 20111122, end: 20111230
  16. PREDNISONE [Concomitant]
     Indication: RHEUMATOID ARTHRITIS
     Route: 065
     Dates: start: 20100525, end: 20110914
  17. PREDNISONE [Concomitant]
     Indication: RHEUMATOID ARTHRITIS
     Route: 065
     Dates: start: 20110915, end: 20111121
  18. PREDNISONE [Concomitant]
     Indication: RHEUMATOID ARTHRITIS
     Route: 065
     Dates: start: 20120726
  19. NAPROXEN [Concomitant]
     Route: 065
     Dates: start: 20101028, end: 20120113

REACTIONS (1)
  - Pancreatitis [Recovered/Resolved]
